FAERS Safety Report 10067737 (Version 2)
Quarter: 2014Q2

REPORT INFORMATION
  Report Type: Spontaneous
  Country: GB (occurrence: None)
  Receive Date: 20140407
  Receipt Date: 20140508
  Transmission Date: 20141212
  Serious: Yes (Hospitalization)
  Sender: FDA-Public Use
  Company Number: GB-ALSI-201400061

PATIENT
  Age: 69 Year
  Sex: Male

DRUGS (1)
  1. OXYGEN [Suspect]
     Indication: DYSPNOEA
     Dosage: 2 | ONCE A MINUTE RESPIRATORY
     Route: 055
     Dates: start: 20140303

REACTIONS (2)
  - Carbon dioxide increased [None]
  - Respiratory depression [None]
